FAERS Safety Report 4929002-3 (Version None)
Quarter: 2006Q1

REPORT INFORMATION
  Report Type: 
  Country: None (occurrence: None)
  Receive Date: 20060301
  Receipt Date: 20060223
  Transmission Date: 20060701
  Serious: Yes (Other)
  Sender: FDA-Public Use
  Company Number: 2006AP00944

PATIENT
  Age: 46 Year
  Sex: Female

DRUGS (3)
  1. OMEPRAL [Suspect]
     Indication: GASTRIC ULCER
     Route: 048
  2. NEO-MINOPHAGEN C [Concomitant]
     Route: 042
  3. VITAMIN PREPARATION [Concomitant]

REACTIONS (3)
  - APLASIA PURE RED CELL [None]
  - HEPATITIS FULMINANT [None]
  - STEVENS-JOHNSON SYNDROME [None]
